FAERS Safety Report 25743925 (Version 2)
Quarter: 2025Q3

REPORT INFORMATION
  Report Type: Report from Study
  Country: CO (occurrence: CO)
  Receive Date: 20250831
  Receipt Date: 20250904
  Transmission Date: 20251020
  Serious: No
  Sender: ABBVIE
  Company Number: CO-ABBVIE-6434835

PATIENT
  Age: 70 Year
  Sex: Female

DRUGS (1)
  1. VENCLEXTA [Suspect]
     Active Substance: VENETOCLAX
     Indication: Acute myeloid leukaemia
     Dosage: BOTTLE 100MG
     Route: 048
     Dates: start: 20240302, end: 20250820

REACTIONS (3)
  - Malaise [Unknown]
  - Toxicity to various agents [Recovered/Resolved]
  - Investigation abnormal [Recovered/Resolved]

NARRATIVE: CASE EVENT DATE: 20250701
